FAERS Safety Report 4290603-X (Version None)
Quarter: 2004Q1

REPORT INFORMATION
  Report Type: 
  Country: None (occurrence: None)
  Receive Date: 20040209
  Receipt Date: 20040128
  Transmission Date: 20041129
  Serious: No
  Sender: FDA-Public Use
  Company Number: US-JNJFOC-20030700426

PATIENT
  Age: 55 Year
  Sex: Female
  Weight: 63.5036 kg

DRUGS (8)
  1. REMICADE [Suspect]
     Indication: RHEUMATOID ARTHRITIS
     Dates: start: 20030314, end: 20030314
  2. METHOTREXATE [Concomitant]
  3. LEVOTHROID [Concomitant]
  4. CELEBREX [Concomitant]
  5. NEXIUM [Concomitant]
  6. PREMARIN [Concomitant]
  7. FOLIC ACID [Concomitant]
  8. TRIAMTERENE (TRIAMTERENE) [Concomitant]

REACTIONS (7)
  - CONDITION AGGRAVATED [None]
  - RHEUMATOID ARTHRITIS [None]
  - SYSTEMIC LUPUS ERYTHEMATOSUS [None]
  - TINNITUS [None]
  - TREATMENT NONCOMPLIANCE [None]
  - UNEXPECTED THERAPEUTIC DRUG EFFECT [None]
  - VERTIGO [None]
